FAERS Safety Report 25920818 (Version 1)
Quarter: 2025Q4

REPORT INFORMATION
  Report Type: Report from Study
  Country: IN (occurrence: IN)
  Receive Date: 20251014
  Receipt Date: 20251014
  Transmission Date: 20260117
  Serious: Yes (Other)
  Sender: DAIICHI
  Company Number: IN-AstraZeneca-CH-00965726A

PATIENT
  Age: 31 Year
  Sex: Female
  Weight: 58 kg

DRUGS (1)
  1. ENHERTU [Suspect]
     Active Substance: FAM-TRASTUZUMAB DERUXTECAN-NXKI
     Indication: Product use in unapproved indication
     Dosage: 200 MG, ONCE EVERY 3 WK
     Route: 042
     Dates: start: 20250705

REACTIONS (2)
  - Cancer pain [Recovering/Resolving]
  - Decreased appetite [Recovering/Resolving]
